FAERS Safety Report 24357490 (Version 1)
Quarter: 2024Q3

REPORT INFORMATION
  Report Type: Spontaneous
  Country: GB (occurrence: GB)
  Receive Date: 20240924
  Receipt Date: 20240924
  Transmission Date: 20241017
  Serious: Yes (Hospitalization)
  Sender: CARA THERAPEUTICS
  Company Number: GB-Vifor Pharma-VIT-2024-08296

PATIENT
  Age: 76 Year
  Sex: Male

DRUGS (1)
  1. KORSUVA [Suspect]
     Active Substance: DIFELIKEFALIN ACETATE
     Indication: Product used for unknown indication
     Dosage: UNK

REACTIONS (2)
  - Malaise [Unknown]
  - Back pain [Unknown]

NARRATIVE: CASE EVENT DATE: 20240701
